FAERS Safety Report 6862778-7 (Version None)
Quarter: 2010Q3

REPORT INFORMATION
  Report Type: 
  Country: None (occurrence: None)
  Receive Date: 20100721
  Receipt Date: 20100712
  Transmission Date: 20110219
  Serious: Yes (Other)
  Sender: FDA-Public Use
  Company Number: US-ROCHE-715932

PATIENT
  Sex: Female
  Weight: 53.5 kg

DRUGS (5)
  1. BONIVA [Suspect]
     Indication: OSTEOPOROSIS
     Route: 048
     Dates: start: 20050101
  2. FOSAMAX [Suspect]
     Indication: OSTEOPOROSIS
     Route: 065
  3. CALCIUM CITRATE [Concomitant]
  4. ATIVAN [Concomitant]
  5. CELEXA [Concomitant]

REACTIONS (2)
  - CHOKING [None]
  - DYSPEPSIA [None]
